FAERS Safety Report 9943247 (Version 1)
Quarter: 2014Q1

REPORT INFORMATION
  Report Type: Spontaneous
  Country: DE (occurrence: DE)
  Receive Date: 20140303
  Receipt Date: 20140303
  Transmission Date: 20141002
  Serious: Yes (Hospitalization, Disabling)
  Sender: FDA-Public Use
  Company Number: DE-GLAXOSMITHKLINE-D0083057A

PATIENT
  Age: 57 Year
  Sex: Female

DRUGS (2)
  1. IMIGRAN [Suspect]
     Indication: HEADACHE
     Dosage: 6MG SEE DOSAGE TEXT
     Route: 058
  2. PHENYTOIN [Concomitant]
     Indication: EPILEPSY
     Dosage: 325MG UNKNOWN
     Route: 065

REACTIONS (2)
  - Grand mal convulsion [Recovered/Resolved]
  - Jaw fracture [Unknown]
